FAERS Safety Report 25214021 (Version 4)
Quarter: 2025Q4

REPORT INFORMATION
  Report Type: Spontaneous
  Country: US (occurrence: US)
  Receive Date: 20250418
  Receipt Date: 20251121
  Transmission Date: 20260117
  Serious: Yes (Other)
  Sender: PFIZER
  Company Number: US-PFIZER INC-202500061234

PATIENT
  Age: 64 Year
  Sex: Male

DRUGS (4)
  1. CIBINQO [Suspect]
     Active Substance: ABROCITINIB
     Indication: Dermatitis atopic
     Dosage: 100 MG, DAILY
     Route: 048
  2. CIBINQO [Suspect]
     Active Substance: ABROCITINIB
     Dosage: 100 MG
  3. CIBINQO [Suspect]
     Active Substance: ABROCITINIB
     Dosage: 100 MG TABLET ONCE DAILY
  4. PLAVIX [Concomitant]
     Active Substance: CLOPIDOGREL BISULFATE
     Dosage: UNK

REACTIONS (5)
  - Cardiac operation [Unknown]
  - Infection [Unknown]
  - Pruritus [Unknown]
  - Scratch [Unknown]
  - Rash [Unknown]

NARRATIVE: CASE EVENT DATE: 20250101
